FAERS Safety Report 14181749 (Version 2)
Quarter: 2018Q1

REPORT INFORMATION
  Report Type: Report from Study
  Country: TW (occurrence: TW)
  Receive Date: 20171113
  Receipt Date: 20180219
  Transmission Date: 20180508
  Serious: Yes (Hospitalization, Other)
  Sender: FDA-Public Use
  Company Number: TW-UCBSA-2017029416

PATIENT
  Sex: Male
  Weight: 71 kg

DRUGS (63)
  1. LACOSAMIDE. [Suspect]
     Active Substance: LACOSAMIDE
     Dosage: 200 MG, 2X/DAY (BID)
     Route: 048
     Dates: start: 20170404
  2. FRISIUM [Concomitant]
     Active Substance: CLOBAZAM
     Indication: EPILEPSY
     Dosage: 20 MG, 2X/DAY (BID)
     Route: 048
     Dates: start: 20161213
  3. ACETAMINOPHEN. [Concomitant]
     Active Substance: ACETAMINOPHEN
     Indication: DIARRHOEA
     Dosage: 500 MG, ONCE DAILY (QD)
     Route: 048
     Dates: start: 20170821, end: 20170824
  4. LACTULOSE. [Concomitant]
     Active Substance: LACTULOSE
     Indication: SHUNT INFECTION
     Dosage: 20 ML, ONCE DAILY (QD)
     Route: 048
     Dates: start: 20170918, end: 20170919
  5. BISACODYL. [Concomitant]
     Active Substance: BISACODYL
     Dosage: 20 MG, ONCE DAILY (QD)
     Route: 054
     Dates: start: 20170929, end: 20171006
  6. FYCOMPA [Concomitant]
     Active Substance: PERAMPANEL
     Indication: EPILEPSY
     Dosage: 8 MG, ONCE DAILY (QD)
     Route: 048
     Dates: start: 20161018
  7. DEXTROMETHORPHAN HYDROBROMIDE. [Concomitant]
     Active Substance: DEXTROMETHORPHAN HYDROBROMIDE
     Indication: UPPER RESPIRATORY TRACT INFECTION
     Dosage: 20 MG, 3X/DAY (TID)
     Route: 048
     Dates: start: 20170626, end: 20170629
  8. TERPINE [Concomitant]
     Indication: UPPER RESPIRATORY TRACT INFECTION
     Dosage: 40 MG, ONCE DAILY (QD)
     Route: 048
     Dates: start: 20170626, end: 20170629
  9. IBUPROFEN. [Concomitant]
     Active Substance: IBUPROFEN
     Dosage: 400 MG, AS NEEDED (PRN)
     Route: 048
     Dates: start: 20170821, end: 20170824
  10. TRAMADOL HCL [Concomitant]
     Active Substance: TRAMADOL HYDROCHLORIDE
     Indication: ABDOMINAL PAIN
     Dosage: 100 MG, UNK (IF)
     Dates: start: 20170909, end: 20170910
  11. METHYL SALICYLATE [Concomitant]
     Active Substance: METHYL SALICYLATE
     Indication: SHUNT INFECTION
     Dosage: UNK
     Dates: start: 20170926, end: 20171005
  12. TAMSULOSIN HCL [Concomitant]
     Active Substance: TAMSULOSIN HYDROCHLORIDE
     Dosage: 0.4 MG, ONCE DAILY (QD)
     Route: 048
     Dates: start: 20170928, end: 20171013
  13. TAMSULOSIN HCL [Concomitant]
     Active Substance: TAMSULOSIN HYDROCHLORIDE
     Indication: URINARY RETENTION
     Dosage: 0.2 MG, 2X/DAY (BID) LZ
     Dates: start: 20170925, end: 20170925
  14. SENNOSIDE A+B [Concomitant]
     Active Substance: SENNOSIDES A AND B
     Dosage: 37.5 MG, ONCE DAILY (QD)
     Route: 048
     Dates: start: 20170916, end: 20170920
  15. CEFAZOLIN SODIUM. [Concomitant]
     Active Substance: CEFAZOLIN SODIUM
     Indication: PRODUCT USED FOR UNKNOWN INDICATION
     Dosage: UNK
  16. FAMOTIDINE. [Concomitant]
     Active Substance: FAMOTIDINE
     Dosage: 20 MG, 3X/DAY (TID)
     Route: 048
     Dates: start: 20170821, end: 20170824
  17. ACETAMINOPHEN. [Concomitant]
     Active Substance: ACETAMINOPHEN
     Dosage: 500 MG, 4X/DAY (QID)
     Route: 048
     Dates: start: 20170909, end: 20170910
  18. ACETAMINOPHEN. [Concomitant]
     Active Substance: ACETAMINOPHEN
     Dosage: 500 MG, ONCE DAILY (QD)
     Route: 048
     Dates: start: 20171016, end: 20171019
  19. DIMETHICONE. [Concomitant]
     Active Substance: DIMETHICONE
     Indication: UPPER RESPIRATORY TRACT INFECTION
     Dosage: 40 MG, 3X/DAY (TID)
     Route: 048
     Dates: start: 20170821, end: 20170824
  20. FLURBIPROFEN. [Concomitant]
     Active Substance: FLURBIPROFEN
     Indication: MYALGIA
     Dosage: 40 MG, AS NEEDED (PRN)
     Dates: start: 20170714
  21. PROMETIN [Concomitant]
     Indication: PRODUCT USED FOR UNKNOWN INDICATION
  22. ZALAIN [Concomitant]
     Active Substance: SERTACONAZOLE NITRATE
     Indication: SHUNT INFECTION
     Dosage: UNK, 2X/DAY (BID)
     Dates: start: 20170919, end: 20171005
  23. DICLOFENAC SODIUM. [Concomitant]
     Active Substance: DICLOFENAC SODIUM
     Indication: UPPER RESPIRATORY TRACT INFECTION
     Dosage: 50 MG, 3X/DAY (TID)
     Route: 048
     Dates: start: 20170626, end: 20170629
  24. AMBROXOL HYDROCHLORIDE [Concomitant]
     Active Substance: AMBROXOL HYDROCHLORIDE
     Indication: UPPER RESPIRATORY TRACT INFECTION
     Dosage: 30 MG, 3X/DAY (TID)
     Route: 048
     Dates: start: 20170821, end: 20170824
  25. CEFMETAZOLE SODIUM [Concomitant]
     Active Substance: CEFMETAZOLE SODIUM
     Indication: SHUNT INFECTION
     Dosage: 1000 MG, 3X/DAY (TID)
     Route: 042
     Dates: start: 20170909, end: 20170910
  26. BISACODYL. [Concomitant]
     Active Substance: BISACODYL
     Indication: SHUNT INFECTION
     Dosage: 20 MG, AS NEEDED (PRN)
     Route: 054
     Dates: start: 20170907, end: 20170921
  27. POVIDONE-IODINE. [Concomitant]
     Active Substance: POVIDONE-IODINE
     Indication: SHUNT INFECTION
     Dosage: UNK
     Dates: start: 20170914, end: 20170930
  28. LIDOCAINE. [Concomitant]
     Active Substance: LIDOCAINE
     Indication: SHUNT INFECTION
     Dosage: UNK
     Dates: start: 20170926, end: 20171005
  29. TAMSULOSIN HCL [Concomitant]
     Active Substance: TAMSULOSIN HYDROCHLORIDE
     Indication: URINARY RETENTION
     Dosage: 0.2 MG, 2X/DAY (BID)
     Route: 048
     Dates: start: 20170926, end: 20170928
  30. TOPAMAX [Concomitant]
     Active Substance: TOPIRAMATE
     Dosage: 100 MG, 2X/DAY (BID)
     Route: 048
     Dates: start: 20170523
  31. FEXOFENADINE [Concomitant]
     Active Substance: FEXOFENADINE\FEXOFENADINE HYDROCHLORIDE
     Indication: UPPER RESPIRATORY TRACT INFECTION
     Dosage: 60 MG, 3X/DAY (TID)
     Route: 048
     Dates: start: 20170626, end: 20170629
  32. ACETAMINOPHEN. [Concomitant]
     Active Substance: ACETAMINOPHEN
     Dosage: 325 MG, 3X/DAY (TID)
     Route: 048
     Dates: start: 20170915, end: 20170917
  33. TRAMADOL HCL [Concomitant]
     Active Substance: TRAMADOL HYDROCHLORIDE
     Dosage: 50 MG, UNK IF
     Dates: start: 20170910, end: 20170917
  34. POLYETHYLENE GLYCOL [Concomitant]
     Active Substance: POLYETHYLENE GLYCOLS
     Indication: PRODUCT USED FOR UNKNOWN INDICATION
  35. LACOSAMIDE. [Suspect]
     Active Substance: LACOSAMIDE
     Dosage: 100 MG, 2X/DAY (BID)
     Route: 048
     Dates: start: 20170314, end: 20170328
  36. LACOSAMIDE. [Suspect]
     Active Substance: LACOSAMIDE
     Dosage: 150 MG, 2X/DAY (BID)
     Route: 048
     Dates: start: 20170328, end: 20170404
  37. TEGRETOL [Concomitant]
     Active Substance: CARBAMAZEPINE
     Indication: EPILEPSY
     Dosage: 400 MG, 2X/DAY (BID)
     Route: 048
     Dates: start: 20110207
  38. PSEUDOEPHEDRINE HYDROCHLORIDE. [Concomitant]
     Active Substance: PSEUDOEPHEDRINE HYDROCHLORIDE
     Indication: UPPER RESPIRATORY TRACT INFECTION
     Dosage: 60 MG, 3X/DAY (TID)
     Route: 048
     Dates: start: 20170626, end: 20170629
  39. ACETAMINOPHEN. [Concomitant]
     Active Substance: ACETAMINOPHEN
     Indication: UPPER RESPIRATORY TRACT INFECTION
     Dosage: 500 MG, ONCE DAILY (QD)
     Route: 048
     Dates: start: 20170626, end: 20170629
  40. DOMPERIDONE [Concomitant]
     Active Substance: DOMPERIDONE
     Indication: UPPER RESPIRATORY TRACT INFECTION
     Dosage: 10 MG, 3X/DAY (TID)
     Route: 048
     Dates: start: 20170821, end: 20170824
  41. BROMHEXINE HYDROCHLORIDE [Concomitant]
     Active Substance: BROMHEXINE HYDROCHLORIDE
     Indication: UPPER RESPIRATORY TRACT INFECTION
     Dosage: 8 MG, ONCE DAILY (QD)
     Route: 048
     Dates: start: 20170821, end: 20170824
  42. CEFTRIAXONE SODIUM. [Concomitant]
     Active Substance: CEFTRIAXONE SODIUM
     Indication: SHUNT INFECTION
     Dosage: 2000 MG, 2X/DAY (BID)
     Route: 042
     Dates: start: 20170910, end: 20170928
  43. SENNOSIDE A+B [Concomitant]
     Active Substance: SENNOSIDES A AND B
     Indication: SHUNT INFECTION
     Dosage: 25 MG, ONCE DAILY (QD)
     Route: 048
     Dates: start: 20170910, end: 20170916
  44. AMINO ACIDS NOS W/ELECTROLYTES NOS/GLUCOSE [Concomitant]
     Indication: SHUNT INFECTION
     Dosage: 1000 ML, ONCE DAILY (QD) IF
     Dates: start: 20170910, end: 20170919
  45. DICLOFENAC SODIUM. [Concomitant]
     Active Substance: DICLOFENAC SODIUM
     Dosage: 50 MG, 3X/DAY (TID)
     Route: 048
     Dates: start: 20170821, end: 20170824
  46. LYSOZYME CHLORIDE [Concomitant]
     Active Substance: LYSOZYME HYDROCHLORIDE
     Indication: UPPER RESPIRATORY TRACT INFECTION
     Dosage: 20 MG, 3X/DAY (TID)
     Route: 048
     Dates: start: 20170626, end: 20170629
  47. FAMOTIDINE. [Concomitant]
     Active Substance: FAMOTIDINE
     Indication: UPPER RESPIRATORY TRACT INFECTION
     Dosage: 20 MG, 3X/DAY (TID)
     Route: 048
     Dates: start: 20170626, end: 20170629
  48. LORATADINE. [Concomitant]
     Active Substance: LORATADINE
     Indication: UPPER RESPIRATORY TRACT INFECTION
     Dosage: 10 MG, ONCE DAILY (QD)
     Route: 048
     Dates: start: 20170626, end: 20170629
  49. PARAMOL [Concomitant]
     Indication: PRODUCT USED FOR UNKNOWN INDICATION
  50. BETHANECHOL CHLORIDE. [Concomitant]
     Active Substance: BETHANECHOL CHLORIDE
     Indication: URINARY RETENTION
     Dosage: 25 MG, UNK
     Route: 048
     Dates: start: 20170927, end: 20171019
  51. TAMSULOSIN HCL [Concomitant]
     Active Substance: TAMSULOSIN HYDROCHLORIDE
     Dosage: 0.4 MG, ONCE DAILY (QD)  LZ
     Dates: start: 20171012, end: 20171019
  52. LACOSAMIDE. [Suspect]
     Active Substance: LACOSAMIDE
     Indication: EPILEPSY
     Dosage: 50 MG, 2X/DAY (BID)
     Route: 048
     Dates: start: 20170307, end: 20170314
  53. TOPAMAX [Concomitant]
     Active Substance: TOPIRAMATE
     Indication: EPILEPSY
     Dosage: 150 MG, 2X/DAY (BID)
     Route: 048
     Dates: start: 20150817, end: 20170523
  54. CODEINE PHOSPHATE [Concomitant]
     Active Substance: CODEINE PHOSPHATE
     Indication: UPPER RESPIRATORY TRACT INFECTION
     Dosage: 5 MG, ONCE DAILY (QD)
     Route: 048
     Dates: start: 20170626, end: 20170629
  55. IBUPROFEN. [Concomitant]
     Active Substance: IBUPROFEN
     Indication: UPPER RESPIRATORY TRACT INFECTION
     Dosage: 400 MG, AS NEEDED (PRN)
     Route: 048
     Dates: start: 20170626, end: 20170629
  56. MAGNESIUM OXIDE. [Concomitant]
     Active Substance: MAGNESIUM OXIDE
     Indication: SHUNT INFECTION
     Dosage: 500 MG, 3X/DAY (TID)
     Dates: start: 20170929, end: 20171013
  57. TRAMADOL HCL [Concomitant]
     Active Substance: TRAMADOL HYDROCHLORIDE
     Indication: ABDOMINAL PAIN
     Dosage: 37.5 MG, 3X/DAY (TID)
     Route: 048
     Dates: start: 20170915, end: 20170917
  58. LACTULOSE. [Concomitant]
     Active Substance: LACTULOSE
     Dosage: 30 ML, ONCE DAILY (QD)
     Route: 048
     Dates: start: 20170919, end: 20170920
  59. LACTULOSE. [Concomitant]
     Active Substance: LACTULOSE
     Dosage: 40 ML, ONCE DAILY (QD)
     Route: 048
     Dates: start: 20170920, end: 20170928
  60. BISACODYL. [Concomitant]
     Active Substance: BISACODYL
     Dosage: 20 MG, AS NEEDED (PRN)
     Route: 054
     Dates: start: 20170921, end: 20170928
  61. CHLORPHENIRAMINE MALEATE. [Concomitant]
     Active Substance: CHLORPHENIRAMINE MALEATE
     Indication: SHUNT INFECTION
     Dosage: UNK
     Dates: start: 20170926, end: 20171005
  62. SERTACONAZOLE NITRATE [Concomitant]
     Active Substance: SERTACONAZOLE NITRATE
     Indication: PRODUCT USED FOR UNKNOWN INDICATION
  63. CHLORPHENIRAMINE MALEATE. [Concomitant]
     Active Substance: CHLORPHENIRAMINE MALEATE
     Indication: PRODUCT USED FOR UNKNOWN INDICATION

REACTIONS (8)
  - Shunt infection [Recovered/Resolved]
  - Liver abscess [Unknown]
  - Myalgia [Recovered/Resolved]
  - Decreased appetite [Recovering/Resolving]
  - Urinary retention [Recovered/Resolved]
  - Constipation [Recovering/Resolving]
  - Upper respiratory tract infection [Recovered/Resolved]
  - Gastroenteritis [Recovered/Resolved]

NARRATIVE: CASE EVENT DATE: 20170322
